FAERS Safety Report 23822372 (Version 1)
Quarter: 2024Q2

REPORT INFORMATION
  Report Type: Report from Study
  Country: US (occurrence: US)
  Receive Date: 20240506
  Receipt Date: 20240506
  Transmission Date: 20240716
  Serious: Yes (Hospitalization, Other)
  Sender: FDA-Public Use
  Company Number: US-OTSUKA-2024_012300

PATIENT
  Age: 52 Year
  Sex: Female

DRUGS (2)
  1. TOLVAPTAN [Suspect]
     Active Substance: TOLVAPTAN
     Indication: Congenital cystic kidney disease
     Dosage: 45 MG
     Route: 065
     Dates: start: 20240411, end: 20240428
  2. TOLVAPTAN [Suspect]
     Active Substance: TOLVAPTAN
     Dosage: 15 MG
     Route: 065
     Dates: start: 20240411, end: 20240428

REACTIONS (4)
  - Abdominal rebound tenderness [Unknown]
  - Abdominal pain lower [Unknown]
  - Thirst [Unknown]
  - Polyuria [Unknown]

NARRATIVE: CASE EVENT DATE: 20240401
